FAERS Safety Report 23807298 (Version 1)
Quarter: 2024Q2

REPORT INFORMATION
  Report Type: Spontaneous
  Country: ZA (occurrence: None)
  Receive Date: 20240502
  Receipt Date: 20240502
  Transmission Date: 20240716
  Serious: Yes (Hospitalization)
  Sender: FDA-Public Use
  Company Number: 2024A099537

PATIENT
  Sex: Female

DRUGS (14)
  1. DAPAGLIFLOZIN PROPANEDIOL [Suspect]
     Active Substance: DAPAGLIFLOZIN PROPANEDIOL
     Indication: Type 2 diabetes mellitus
     Dosage: 10.0MG UNKNOWN
     Route: 048
  2. TORSINAT [Concomitant]
     Indication: Hypertension
     Dosage: 10.0MG UNKNOWN
     Route: 048
  3. POTASSIUM CHLORIDE [Concomitant]
     Active Substance: POTASSIUM CHLORIDE
     Indication: Hypokalaemia
     Dosage: 600.0MG UNKNOWN
     Route: 048
  4. AMITRIPTYLINE HCL KIARA [Concomitant]
     Indication: Depression
     Dosage: 25.0MG UNKNOWN
     Route: 048
  5. AMITRIPTYLINE HCL KIARA [Concomitant]
     Indication: Anxiety
     Dosage: 25.0MG UNKNOWN
     Route: 048
  6. AMITRIPTYLINE HCL KIARA [Concomitant]
     Indication: Stress
     Dosage: 25.0MG UNKNOWN
     Route: 048
  7. AMITRIPTYLINE HCL KIARA [Concomitant]
     Indication: Insomnia
     Dosage: 25.0MG UNKNOWN
     Route: 048
  8. AMITRIPTYLINE HCL KIARA [Concomitant]
     Indication: Pain
     Dosage: 25.0MG UNKNOWN
     Route: 048
  9. AMITRIPTYLINE HCL KIARA [Concomitant]
     Indication: Migraine
     Dosage: 25.0MG UNKNOWN
     Route: 048
  10. SPIRACTIN [Concomitant]
     Indication: Hypertension
     Route: 048
  11. SPIRACTIN [Concomitant]
     Indication: Oedema
     Route: 048
  12. SPIRACTIN [Concomitant]
     Indication: Cardiac failure
     Route: 048
  13. SPIRACTIN [Concomitant]
     Indication: Hepatic cirrhosis
     Route: 048
  14. SPIRACTIN [Concomitant]
     Indication: Renal impairment
     Route: 048

REACTIONS (2)
  - Cardiac disorder [Unknown]
  - Spinal disorder [Unknown]
